FAERS Safety Report 4375646-X (Version None)
Quarter: 2004Q2

REPORT INFORMATION
  Report Type: 
  Country: None (occurrence: None)
  Receive Date: 20040610
  Receipt Date: 20040603
  Transmission Date: 20050107
  Serious: Yes (Other)
  Sender: FDA-Public Use
  Company Number: US-GLAXOSMITHKLINE-A0513278A

PATIENT
  Age: 24 Year
  Sex: Female

DRUGS (3)
  1. PAXIL [Suspect]
     Dosage: 20MG PER DAY
     Route: 048
     Dates: start: 19980101, end: 20000101
  2. KLONOPIN [Concomitant]
  3. VALIUM [Concomitant]

REACTIONS (10)
  - ABNORMAL BEHAVIOUR [None]
  - ALCOHOLISM [None]
  - DEPRESSION [None]
  - DRUG ABUSER [None]
  - DRUG WITHDRAWAL SYNDROME [None]
  - ELECTRIC SHOCK [None]
  - EMOTIONAL DISORDER [None]
  - FEELING ABNORMAL [None]
  - SUICIDAL IDEATION [None]
  - WEIGHT DECREASED [None]
